FAERS Safety Report 22144210 (Version 2)
Quarter: 2023Q4

REPORT INFORMATION
  Report Type: Report from Study
  Country: CA (occurrence: CA)
  Receive Date: 20230328
  Receipt Date: 20231127
  Transmission Date: 20240110
  Serious: Yes (Other)
  Sender: FDA-Public Use
  Company Number: CA-TAKEDA-CA201830369

PATIENT
  Sex: Female

DRUGS (1)
  1. HUMAN IMMUNOGLOBULIN G [Suspect]
     Active Substance: HUMAN IMMUNOGLOBULIN G
     Indication: Primary immunodeficiency syndrome
     Dosage: 6 GRAM, 1/WEEK
     Route: 058
     Dates: start: 20180723, end: 2023

REACTIONS (6)
  - Pneumonia [Recovering/Resolving]
  - Tongue discomfort [Unknown]
  - Eructation [Unknown]
  - Gastrointestinal infection [Unknown]
  - Injection site swelling [Unknown]
  - Headache [Unknown]
